FAERS Safety Report 19588695 (Version 1)
Quarter: 2021Q3

REPORT INFORMATION
  Report Type: Spontaneous
  Country: US (occurrence: US)
  Receive Date: 20210721
  Receipt Date: 20210721
  Transmission Date: 20211014
  Serious: Yes (Death)
  Sender: FDA-Public Use
  Company Number: None

PATIENT

DRUGS (3)
  1. VITAMIN C [Concomitant]
     Active Substance: ASCORBIC ACID
  2. VITAMIN D3 [Concomitant]
     Active Substance: CHOLECALCIFEROL
  3. ONDANSETRON [Suspect]
     Active Substance: ONDANSETRON
     Indication: NAUSEA
     Dosage: ?          OTHER ROUTE:INJECTION?
     Dates: start: 20210416, end: 20210416

REACTIONS (4)
  - Syncope [None]
  - Cardiac arrest [None]
  - Ventricular tachycardia [None]
  - Ventricular fibrillation [None]

NARRATIVE: CASE EVENT DATE: 20210416
